FAERS Safety Report 15081009 (Version 1)
Quarter: 2018Q2

REPORT INFORMATION
  Report Type: Spontaneous
  Country: IT (occurrence: IT)
  Receive Date: 20180628
  Receipt Date: 20180628
  Transmission Date: 20180711
  Serious: Yes (Other)
  Sender: FDA-Public Use
  Company Number: IT-SUN PHARMACEUTICAL INDUSTRIES LTD-2018RR-176891

PATIENT
  Age: 48 Year
  Sex: Female

DRUGS (3)
  1. EN [Concomitant]
     Active Substance: DELORAZEPAM
     Indication: PRODUCT USED FOR UNKNOWN INDICATION
  2. EN [Concomitant]
     Active Substance: DELORAZEPAM
     Indication: AGITATION
     Dosage: ()
     Route: 065
  3. OLANZAPINE. [Suspect]
     Active Substance: OLANZAPINE
     Indication: MENTAL DISORDER
     Dosage: 1 DF, QD
     Route: 065
     Dates: start: 20180101, end: 20180502

REACTIONS (2)
  - Agitation [Recovering/Resolving]
  - Hallucination, auditory [Recovering/Resolving]

NARRATIVE: CASE EVENT DATE: 20180429
